FAERS Safety Report 18177695 (Version 1)
Quarter: 2020Q3

REPORT INFORMATION
  Report Type: Other
  Country: US (occurrence: US)
  Receive Date: 20200821
  Receipt Date: 20200821
  Transmission Date: 20201103
  Serious: Yes (Other)
  Sender: FDA-Public Use
  Company Number: US-ROCHE-2662087

PATIENT

DRUGS (6)
  1. ETOPOSIDE. [Suspect]
     Active Substance: ETOPOSIDE
     Indication: NON-HODGKIN^S LYMPHOMA
     Route: 065
  2. CYCLOPHOSPHAMIDE. [Suspect]
     Active Substance: CYCLOPHOSPHAMIDE
     Indication: NON-HODGKIN^S LYMPHOMA
     Route: 065
  3. PREDNISONE. [Suspect]
     Active Substance: PREDNISONE
     Indication: NON-HODGKIN^S LYMPHOMA
     Route: 065
  4. DOXORUBICIN [Suspect]
     Active Substance: DOXORUBICIN
     Indication: NON-HODGKIN^S LYMPHOMA
     Route: 065
  5. VINCRISTINE [Suspect]
     Active Substance: VINCRISTINE
     Indication: NON-HODGKIN^S LYMPHOMA
     Route: 065
  6. RITUXIMAB. [Suspect]
     Active Substance: RITUXIMAB
     Indication: NON-HODGKIN^S LYMPHOMA
     Route: 065

REACTIONS (19)
  - Stomatitis [Unknown]
  - Cardiac failure [Unknown]
  - Vomiting [Unknown]
  - Dehydration [Unknown]
  - Febrile neutropenia [Unknown]
  - Paraesthesia [Unknown]
  - Deep vein thrombosis [Unknown]
  - Neutropenia [Unknown]
  - Platelet count decreased [Unknown]
  - Urinary tract infection [Unknown]
  - Tracheitis [Unknown]
  - Fatigue [Unknown]
  - Lymphocyte count decreased [Unknown]
  - Anaemia [Unknown]
  - Pneumonia [Unknown]
  - Abdominal pain [Unknown]
  - Abdominal infection [Unknown]
  - Nausea [Unknown]
  - Rash maculo-papular [Unknown]
